FAERS Safety Report 4352841-7 (Version None)
Quarter: 2004Q2

REPORT INFORMATION
  Report Type: 
  Country: None (occurrence: None)
  Receive Date: 20040504
  Receipt Date: 20031211
  Transmission Date: 20050107
  Serious: No
  Sender: FDA-Public Use
  Company Number: PHRM2003FR03360

PATIENT
  Age: 58 Year
  Sex: Female

DRUGS (5)
  1. FEMARA [Suspect]
     Indication: BREAST CANCER
     Dosage: 2.5 MG, QD
     Route: 048
  2. SOTALEX [Suspect]
     Dates: start: 20030101, end: 20031022
  3. LASIX [Concomitant]
     Indication: DYSPNOEA
     Route: 048
     Dates: start: 20030601
  4. ATACAND [Concomitant]
     Indication: HYPERTENSION
     Route: 048
     Dates: start: 20021101
  5. ZOLOFT [Concomitant]
     Indication: DEPRESSION
     Route: 048
     Dates: start: 20030401

REACTIONS (3)
  - DYSPNOEA EXERTIONAL [None]
  - PALPITATIONS [None]
  - VENTRICULAR EXTRASYSTOLES [None]
